FAERS Safety Report 7861714-4 (Version None)
Quarter: 2011Q4

REPORT INFORMATION
  Report Type: 
  Country: None (occurrence: None)
  Receive Date: 20111027
  Receipt Date: 20111026
  Transmission Date: 20120403
  Serious: Yes (Hospitalization, Disabling, Other)
  Sender: FDA-Public Use
  Company Number: US-MERCK-1108USA01581

PATIENT
  Age: 60 Year
  Sex: Female

DRUGS (1)
  1. FOSAMAX [Suspect]
     Indication: OSTEOPOROSIS
     Route: 048
     Dates: start: 19960101, end: 20091001

REACTIONS (28)
  - CHOLELITHIASIS [None]
  - FALL [None]
  - SPINAL FRACTURE [None]
  - HYPOKALAEMIA [None]
  - FEMUR FRACTURE [None]
  - FATIGUE [None]
  - DENTAL CARIES [None]
  - BLOOD CHOLESTEROL INCREASED [None]
  - MITRAL VALVE PROLAPSE [None]
  - HYPERLIPIDAEMIA [None]
  - BREAST DISORDER [None]
  - ANAEMIA POSTOPERATIVE [None]
  - GLUCOSE TOLERANCE IMPAIRED [None]
  - ARRHYTHMIA [None]
  - SPINAL COMPRESSION FRACTURE [None]
  - UTERINE LEIOMYOMA [None]
  - BREAST PAIN [None]
  - BACK INJURY [None]
  - OSTEOARTHRITIS [None]
  - HYPERTENSION [None]
  - GASTROINTESTINAL DISORDER [None]
  - INTERVERTEBRAL DISC DEGENERATION [None]
  - ARTHRALGIA [None]
  - ADVERSE DRUG REACTION [None]
  - PROCEDURAL NAUSEA [None]
  - TOOTH DISORDER [None]
  - PAIN [None]
  - MUSCULOSKELETAL DISCOMFORT [None]
